FAERS Safety Report 25881075 (Version 3)
Quarter: 2025Q4

REPORT INFORMATION
  Report Type: Spontaneous
  Country: US (occurrence: US)
  Receive Date: 20251004
  Receipt Date: 20251214
  Transmission Date: 20260118
  Serious: Yes (Other)
  Sender: AMGEN
  Company Number: US-AMGEN-USASP2025193893

PATIENT
  Age: 96 Year
  Sex: Male

DRUGS (1)
  1. PAVBLU [Suspect]
     Active Substance: AFLIBERCEPT-AYYH
     Indication: Product used for unknown indication
     Dosage: UNK, INJECTION
     Route: 065

REACTIONS (2)
  - Uveitis [Unknown]
  - Feeling abnormal [Unknown]
